FAERS Safety Report 23113605 (Version 1)
Quarter: 2023Q4

REPORT INFORMATION
  Report Type: Spontaneous
  Country: CA (occurrence: CA)
  Receive Date: 20231027
  Receipt Date: 20231027
  Transmission Date: 20240109
  Serious: Yes (Hospitalization, Other)
  Sender: FDA-Public Use
  Company Number: CA-ULTRAGENYX PHARMACEUTICAL INC.-CA-UGX-23-01241

PATIENT

DRUGS (1)
  1. DOJOLVI [Suspect]
     Active Substance: TRIHEPTANOIN
     Indication: Fatty acid oxidation disorder

REACTIONS (2)
  - Condition aggravated [Unknown]
  - Off label use [Unknown]
